FAERS Safety Report 7249277-8 (Version None)
Quarter: 2011Q1

REPORT INFORMATION
  Report Type: 
  Country: None (occurrence: None)
  Receive Date: 20110128
  Receipt Date: 20101123
  Transmission Date: 20110831
  Serious: Yes (Hospitalization, Other)
  Sender: FDA-Public Use
  Company Number: US-BAYER-201030675NA

PATIENT
  Sex: Female
  Weight: 61 kg

DRUGS (3)
  1. YAZ [Suspect]
     Indication: CONTRACEPTION
     Route: 048
     Dates: start: 20010401, end: 20080415
  2. YASMIN [Suspect]
     Indication: CONTRACEPTION
     Dosage: UNK
     Route: 048
     Dates: start: 20000101, end: 20080415
  3. ANTIBIOTICS [Concomitant]
     Indication: PRODUCT USED FOR UNKNOWN INDICATION
     Dosage: UNK
     Dates: start: 20030101

REACTIONS (6)
  - CHOLECYSTITIS CHRONIC [None]
  - PANCREATITIS [None]
  - THYROID DISORDER [None]
  - ABDOMINAL PAIN UPPER [None]
  - JAUNDICE [None]
  - CHOLELITHIASIS [None]
